FAERS Safety Report 18530951 (Version 1)
Quarter: 2020Q4

REPORT INFORMATION
  Report Type: Report from Study
  Country: US (occurrence: US)
  Receive Date: 20201121
  Receipt Date: 20201121
  Transmission Date: 20210114
  Serious: No
  Sender: FDA-Public Use
  Company Number: NVSC2020US308952

PATIENT
  Sex: Male

DRUGS (1)
  1. ENTRESTO [Suspect]
     Active Substance: SACUBITRIL\VALSARTAN
     Indication: CARDIAC DYSFUNCTION
     Dosage: 200 MG, BID  (97/103 MG)
     Route: 048
     Dates: start: 201911

REACTIONS (1)
  - Dyspnoea [Unknown]
